FAERS Safety Report 22539840 (Version 3)
Quarter: 2023Q4

REPORT INFORMATION
  Report Type: Spontaneous
  Country: US (occurrence: US)
  Receive Date: 20230609
  Receipt Date: 20231211
  Transmission Date: 20240110
  Serious: Yes (Other)
  Sender: FDA-Public Use
  Company Number: US-IMMUNOGEN, INC.-US-IMGN-23-00148

PATIENT

DRUGS (2)
  1. ELAHERE [Suspect]
     Active Substance: MIRVETUXIMAB SORAVTANSINE-GYNX
     Indication: Malignant peritoneal neoplasm
     Dosage: UNK UNK, 3W
     Route: 042
     Dates: start: 202303
  2. TAXOL [Concomitant]
     Active Substance: PACLITAXEL
     Indication: Malignant peritoneal neoplasm
     Dosage: UNK, UNK
     Route: 065

REACTIONS (2)
  - Neuropathy peripheral [Recovering/Resolving]
  - Carbohydrate antigen 125 increased [Recovering/Resolving]

NARRATIVE: CASE EVENT DATE: 20230301
